FAERS Safety Report 9681005 (Version 1)
Quarter: 2013Q4

REPORT INFORMATION
  Report Type: Spontaneous
  Country: US (occurrence: US)
  Receive Date: 20131111
  Receipt Date: 20131111
  Transmission Date: 20140711
  Serious: Yes (Hospitalization, Other)
  Sender: FDA-Public Use
  Company Number: US-SA-2013SA114969

PATIENT
  Age: 81 Year
  Sex: Female

DRUGS (1)
  1. ALLEGRA [Suspect]
     Indication: HYPERSENSITIVITY
     Dosage: TAKEN FROM: LAST YEAR 2012.
     Route: 048
     Dates: start: 2012, end: 20131104

REACTIONS (2)
  - Electrolyte imbalance [Recovered/Resolved]
  - Hypertension [Unknown]
